FAERS Safety Report 11597815 (Version 1)
Quarter: 2015Q4

REPORT INFORMATION
  Report Type: Spontaneous
  Country: GB (occurrence: GB)
  Receive Date: 20151006
  Receipt Date: 20151006
  Transmission Date: 20160304
  Serious: Yes (Hospitalization)
  Sender: FDA-Public Use
  Company Number: GB-PFIZER INC-2015330370

PATIENT
  Age: 35 Year
  Sex: Female

DRUGS (2)
  1. DIFLUCAN [Suspect]
     Active Substance: FLUCONAZOLE
     Indication: TONSILLITIS
     Dosage: 150 MG, UNK
  2. DIFLUCAN [Suspect]
     Active Substance: FLUCONAZOLE
     Indication: GENITAL HERPES

REACTIONS (2)
  - Cardiac disorder [Unknown]
  - Pericarditis [Unknown]
